FAERS Safety Report 13956637 (Version 4)
Quarter: 2018Q1

REPORT INFORMATION
  Report Type: Spontaneous
  Country: AU (occurrence: AU)
  Receive Date: 20170911
  Receipt Date: 20180309
  Transmission Date: 20180508
  Serious: Yes (Hospitalization, Other)
  Sender: FDA-Public Use
  Company Number: AU-SUN PHARMACEUTICAL INDUSTRIES LTD-2017RR-149514

PATIENT
  Age: 44 Year
  Sex: Male
  Weight: 80 kg

DRUGS (1)
  1. PARACETAMOL [Suspect]
     Active Substance: ACETAMINOPHEN
     Indication: PRODUCT USED FOR UNKNOWN INDICATION
     Dosage: 200 G, 2.5 G/KG
     Route: 048

REACTIONS (8)
  - Heart rate increased [Recovered/Resolved]
  - Blood pressure decreased [Recovered/Resolved]
  - Lactic acidosis [Recovered/Resolved]
  - Overdose [Recovered/Resolved]
  - Acidosis [Recovered/Resolved]
  - Hypothermia [Recovered/Resolved]
  - Coma [Recovered/Resolved]
  - Hyperglycaemia [Recovered/Resolved]
